FAERS Safety Report 11281762 (Version 2)
Quarter: 2015Q4

REPORT INFORMATION
  Report Type: Spontaneous
  Country: US (occurrence: US)
  Receive Date: 20150717
  Receipt Date: 20151106
  Transmission Date: 20160304
  Serious: Yes (Hospitalization)
  Sender: FDA-Public Use
  Company Number: US-ACTELION-A-NJ2015-112315

PATIENT
  Age: 55 Year
  Sex: Female

DRUGS (4)
  1. OPSUMIT [Suspect]
     Active Substance: MACITENTAN
     Dosage: 10 MG, QD
     Route: 048
  2. ADCIRCA [Concomitant]
     Active Substance: TADALAFIL
     Dosage: UNK
  3. OPSUMIT [Suspect]
     Active Substance: MACITENTAN
     Indication: PULMONARY ARTERIAL HYPERTENSION
     Dosage: 10 MG, QD
     Route: 048
     Dates: start: 20150121
  4. COUMADIN [Concomitant]
     Active Substance: WARFARIN SODIUM

REACTIONS (15)
  - Ascites [Unknown]
  - General physical health deterioration [Unknown]
  - Dizziness [Unknown]
  - Quality of life decreased [Unknown]
  - Chest discomfort [Unknown]
  - Asthenia [Unknown]
  - Gait disturbance [Unknown]
  - Vomiting [Unknown]
  - Pneumonia [Unknown]
  - Dyspnoea [Unknown]
  - Activities of daily living impaired [Unknown]
  - Fatigue [Unknown]
  - Condition aggravated [Unknown]
  - Chills [Unknown]
  - No therapeutic response [Unknown]
